FAERS Safety Report 20973390 (Version 1)
Quarter: 2022Q2

REPORT INFORMATION
  Report Type: Other
  Country: US (occurrence: None)
  Receive Date: 20220617
  Receipt Date: 20220617
  Transmission Date: 20220721
  Serious: Yes (Hospitalization)
  Sender: FDA-Public Use
  Company Number: US-ROCHE-3110833

PATIENT
  Age: 15 Year
  Sex: Male
  Weight: 32.6 kg

DRUGS (6)
  1. EVRYSDI [Suspect]
     Active Substance: RISDIPLAM
     Indication: Spinal muscular atrophy
     Route: 050
     Dates: start: 202007, end: 202008
  2. EVRYSDI [Suspect]
     Active Substance: RISDIPLAM
     Route: 050
     Dates: start: 202205, end: 202205
  3. EVRYSDI [Suspect]
     Active Substance: RISDIPLAM
     Dosage: TAKE 5MG (6.6 ML) VIA G-TUBE EVERY DAY
     Route: 065
  4. LABETALOL [Concomitant]
     Active Substance: LABETALOL\LABETALOL HYDROCHLORIDE
     Indication: Hypertension
     Dosage: ENTERAL
     Route: 050
     Dates: start: 201403
  5. KEPPRA [Concomitant]
     Active Substance: LEVETIRACETAM
     Indication: Seizure
     Dosage: ENTERAL
     Route: 050
     Dates: start: 202103
  6. LASIX [Concomitant]
     Active Substance: FUROSEMIDE
     Indication: Fluid retention
     Dosage: ENTERAL
     Route: 050
     Dates: start: 202103

REACTIONS (3)
  - Autonomic nervous system imbalance [Recovered/Resolved]
  - Autonomic nervous system imbalance [Recovered/Resolved]
  - Intentional product misuse [Unknown]

NARRATIVE: CASE EVENT DATE: 20200701
